FAERS Safety Report 23382966 (Version 1)
Quarter: 2024Q1

REPORT INFORMATION
  Report Type: Spontaneous
  Country: CA (occurrence: CA)
  Receive Date: 20240109
  Receipt Date: 20240109
  Transmission Date: 20240409
  Serious: Yes (Other)
  Sender: FDA-Public Use
  Company Number: CA-SANDOZ-SDZ2024CA000911

PATIENT
  Age: 63 Year
  Sex: Female

DRUGS (3)
  1. BUPROPION HYDROCHLORIDE [Suspect]
     Active Substance: BUPROPION HYDROCHLORIDE
     Indication: Depression
     Dosage: 450.0 MG
     Route: 065
  2. DULOXETINE [Suspect]
     Active Substance: DULOXETINE
     Indication: Depression
     Dosage: 120.0 MG
     Route: 065
  3. PRAZOSIN [Suspect]
     Active Substance: PRAZOSIN
     Indication: Nightmare
     Dosage: 2.0 MG
     Route: 065

REACTIONS (2)
  - Cognitive disorder [Unknown]
  - Mental disorder [Unknown]
